FAERS Safety Report 21087276 (Version 1)
Quarter: 2022Q3

REPORT INFORMATION
  Report Type: Spontaneous
  Country: FR (occurrence: FR)
  Receive Date: 20220715
  Receipt Date: 20220715
  Transmission Date: 20221027
  Serious: Yes (Other)
  Sender: FDA-Public Use
  Company Number: FR-AFSSAPS-TO20222134

PATIENT
  Age: 88 Year
  Sex: Male
  Weight: 77 kg

DRUGS (4)
  1. PANTOPRAZOLE [Suspect]
     Active Substance: PANTOPRAZOLE
     Indication: Gastritis
     Dosage: 20 MILLIGRAM, DAILY LONG COURS
     Route: 065
  2. OLANZAPINE [Suspect]
     Active Substance: OLANZAPINE
     Indication: Obsessive thoughts
     Dosage: 2.5 MILLIGRAM, DAILY 1/2 CP OF 5 MG
     Route: 065
     Dates: start: 201911, end: 20211105
  3. FUROSEMIDE [Suspect]
     Active Substance: FUROSEMIDE
     Indication: Hypertensive heart disease
     Dosage: 40 MILLIGRAM, DAILY LONG COURS
     Route: 065
  4. MIRTAZAPINE [Suspect]
     Active Substance: MIRTAZAPINE
     Indication: Depression
     Dosage: 30 MILLIGRAM, DAILY 2 TABLETS AT BEDTIME
     Route: 065
     Dates: start: 201911

REACTIONS (2)
  - Asthenia [Recovering/Resolving]
  - Hyponatraemia [Recovering/Resolving]

NARRATIVE: CASE EVENT DATE: 20191101
